FAERS Safety Report 19788897 (Version 3)
Quarter: 2022Q2

REPORT INFORMATION
  Report Type: Spontaneous
  Country: GB (occurrence: GB)
  Receive Date: 20210904
  Receipt Date: 20220623
  Transmission Date: 20220720
  Serious: Yes (Hospitalization, Other)
  Sender: FDA-Public Use
  Company Number: GB-ROCHE-1888630

PATIENT
  Age: 77 Year
  Sex: Female

DRUGS (64)
  1. ANASTROZOLE [Suspect]
     Active Substance: ANASTROZOLE
     Indication: Breast cancer metastatic
     Dosage: 10 MILLIGRAM, ONCE A DAY
     Route: 048
  2. ANASTROZOLE [Suspect]
     Active Substance: ANASTROZOLE
     Dosage: 1 MILLIGRAM, ONCE A DAY
     Route: 048
  3. ANASTROZOLE [Suspect]
     Active Substance: ANASTROZOLE
     Dosage: 178.041 UNK
     Route: 048
  4. DOCETAXEL [Suspect]
     Active Substance: DOCETAXEL
     Indication: Breast cancer metastatic
     Dosage: 170 MILLIGRAM, ONCE A DAY
     Route: 042
     Dates: start: 20150807
  5. DOCETAXEL [Suspect]
     Active Substance: DOCETAXEL
     Indication: Breast cancer metastatic
     Dosage: 170 MILLIGRAM, ONCE A DAY
     Route: 042
     Dates: start: 20150721, end: 20150721
  6. DOCETAXEL [Suspect]
     Active Substance: DOCETAXEL
     Dosage: 170 MILLIGRAM, ONCE A DAY
     Route: 042
     Dates: start: 20150721, end: 20150807
  7. PERTUZUMAB [Suspect]
     Active Substance: PERTUZUMAB
     Indication: Breast cancer metastatic
     Dosage: 420 MILLIGRAM, 3 WEEKS
     Route: 042
     Dates: start: 20150721
  8. PERTUZUMAB [Suspect]
     Active Substance: PERTUZUMAB
     Indication: Breast cancer metastatic
  9. TRASTUZUMAB [Suspect]
     Active Substance: TRASTUZUMAB
     Indication: Breast cancer metastatic
     Dosage: 600 MILLIGRAM, 3 WEEKS
     Route: 058
     Dates: start: 20150721, end: 20151126
  10. TRASTUZUMAB [Suspect]
     Active Substance: TRASTUZUMAB
     Indication: Breast cancer metastatic
     Dosage: 1200 MILLIGRAM
     Route: 058
     Dates: start: 20150721
  11. TRASTUZUMAB [Suspect]
     Active Substance: TRASTUZUMAB
     Dosage: 1200 MILLIGRAM
     Route: 065
     Dates: start: 20151126, end: 20151126
  12. ALENDRONIC ACID [Concomitant]
     Active Substance: ALENDRONIC ACID
     Indication: Osteopenia
     Dosage: 70 MILLIGRAM, 1 WEEK
     Route: 065
     Dates: start: 20180205
  13. ATORVASTATIN [Concomitant]
     Active Substance: ATORVASTATIN
     Indication: Prophylaxis
     Dosage: 20 MILLIGRAM, ONCE A DAY
     Route: 048
  14. ATORVASTATIN [Concomitant]
     Active Substance: ATORVASTATIN
     Dosage: 20 MILLIGRAM, ONCE A DAY
     Route: 048
     Dates: start: 20161130
  15. BISOPROLOL [Concomitant]
     Active Substance: BISOPROLOL
     Indication: Ejection fraction decreased
     Dosage: 2.5 MILLIGRAM, ONCE A DAY
     Route: 048
     Dates: start: 20160415
  16. BISOPROLOL [Concomitant]
     Active Substance: BISOPROLOL
     Indication: Product used for unknown indication
     Dosage: 1.25 MILLIGRAM, ONCE A DAY
     Route: 048
     Dates: start: 20160121
  17. BISOPROLOL [Concomitant]
     Active Substance: BISOPROLOL
     Dosage: 2.5 MILLIGRAM, ONCE A DAY
     Route: 048
     Dates: start: 20160415
  18. CALCIUM CARBONATE [Concomitant]
     Active Substance: CALCIUM CARBONATE
     Indication: Osteopenia
     Dosage: 1000 MILLIGRAM, ONCE A DAY
     Route: 048
     Dates: start: 20180205
  19. CANDESARTAN [Concomitant]
     Active Substance: CANDESARTAN
     Indication: Product used for unknown indication
     Dosage: 32 MILLIGRAM, ONCE A DAY
     Route: 048
     Dates: start: 2013
  20. CHLORPHENIRAMINE MALEATE [Concomitant]
     Active Substance: CHLORPHENIRAMINE MALEATE
     Indication: Premedication
     Dosage: 10 MILLIGRAM
     Route: 042
     Dates: start: 20150721, end: 20151126
  21. CLOPIDOGREL [Concomitant]
     Active Substance: CLOPIDOGREL BISULFATE
     Indication: Prophylaxis
     Dosage: 75 MILLIGRAM
     Route: 048
  22. CLOPIDOGREL [Concomitant]
     Active Substance: CLOPIDOGREL BISULFATE
     Dosage: 75 MILLIGRAM, ONCE A DAY
     Route: 048
     Dates: start: 20161130
  23. COCODAMOL [Concomitant]
     Active Substance: ACETAMINOPHEN\CODEINE PHOSPHATE
     Indication: Product used for unknown indication
     Dosage: 500 MILLIGRAM, AS NECESSARY
     Route: 048
  24. COCODAMOL [Concomitant]
     Active Substance: ACETAMINOPHEN\CODEINE PHOSPHATE
     Dosage: 500 MILLIGRAM, AS NECESSARY
     Route: 048
     Dates: start: 20150720
  25. CO-DYDRAMOL [Concomitant]
     Active Substance: ACETAMINOPHEN\DIHYDROCODEINE
     Indication: Back pain
     Dosage: 500 MILLIGRAM
     Route: 048
     Dates: start: 201701
  26. DALTEPARIN [Concomitant]
     Active Substance: DALTEPARIN
     Indication: Pleural effusion
     Dosage: 1000 INTERNATIONAL UNIT, ONCE A DAY
     Route: 058
     Dates: start: 20151206
  27. DEXAMETHASONE [Concomitant]
     Active Substance: DEXAMETHASONE
     Indication: Prophylaxis
     Dosage: 8 MILLIGRAM, TWO TIMES A DAY
     Route: 048
     Dates: start: 20150721, end: 20150722
  28. DEXAMETHASONE [Concomitant]
     Active Substance: DEXAMETHASONE
     Dosage: 1 DROP
     Route: 048
     Dates: start: 20160601
  29. DIAMOX SEQUELS [Concomitant]
     Active Substance: ACETAZOLAMIDE
     Indication: Product used for unknown indication
     Dosage: 1 DROP
     Route: 047
     Dates: start: 20160601, end: 20160604
  30. DIGOXIN [Concomitant]
     Active Substance: DIGOXIN
     Indication: Product used for unknown indication
     Dosage: 62.5 MILLIGRAM, ONCE A DAY
     Route: 048
     Dates: start: 20160121
  31. DIGOXIN [Concomitant]
     Active Substance: DIGOXIN
     Dosage: 62.5 MICROGRAM
     Route: 048
     Dates: start: 20160121
  32. DIGOXIN [Concomitant]
     Active Substance: DIGOXIN
     Dosage: 500 MILLIGRAM
     Route: 048
     Dates: start: 201701
  33. FELODIPINE [Concomitant]
     Active Substance: FELODIPINE
     Indication: Product used for unknown indication
     Dosage: 2.5 MILLIGRAM, ONCE A DAY
     Route: 048
     Dates: start: 20161030
  34. FENTANYL [Concomitant]
     Active Substance: FENTANYL
     Indication: Product used for unknown indication
     Dosage: 200 MICROGRAM
     Route: 042
     Dates: start: 20160531, end: 20160601
  35. FUROSEMIDE [Concomitant]
     Active Substance: FUROSEMIDE
     Indication: Dyspnoea
     Dosage: 100 MILLIGRAM, ONCE A DAY
     Route: 042
     Dates: start: 20151206
  36. FUROSEMIDE [Concomitant]
     Active Substance: FUROSEMIDE
     Dosage: 50 MILLIGRAM, TWO TIMES A DAY
     Route: 042
     Dates: start: 20151206, end: 20151207
  37. FUROSEMIDE [Concomitant]
     Active Substance: FUROSEMIDE
     Dosage: 40 MILLIGRAM, ONCE A DAY
     Route: 065
     Dates: start: 20151211
  38. IBUPROFEN [Concomitant]
     Active Substance: IBUPROFEN
     Indication: Product used for unknown indication
     Dosage: 1200 MILLIGRAM, ONCE A DAY
     Route: 065
     Dates: start: 20150918
  39. IMODIUM [Concomitant]
     Active Substance: LOPERAMIDE HYDROCHLORIDE
     Indication: Product used for unknown indication
     Dosage: 4 MILLIGRAM
     Route: 065
     Dates: start: 20150730
  40. INDAPAMIDE [Concomitant]
     Active Substance: INDAPAMIDE
     Indication: Product used for unknown indication
     Dosage: 2.5 MILLIGRAM, ONCE A DAY
     Route: 065
     Dates: start: 2016
  41. IOPIDINE [Concomitant]
     Active Substance: APRACLONIDINE HYDROCHLORIDE
     Indication: Product used for unknown indication
     Dosage: 1 DROP, ONCE A DAY
     Route: 047
     Dates: start: 20160601, end: 20160629
  42. LIDOCAINE [Concomitant]
     Active Substance: LIDOCAINE
     Indication: Pain
     Dosage: 1 DOSAGE FORM, AS NECESSARY
     Route: 062
     Dates: start: 20190405
  43. LISINOPRIL [Concomitant]
     Active Substance: LISINOPRIL
     Indication: Dyspnoea
     Dosage: 5 MILLIGRAM, ONCE A DAY
     Route: 048
     Dates: start: 20151218
  44. LISINOPRIL [Concomitant]
     Active Substance: LISINOPRIL
     Dosage: 2.5 MILLIGRAM, ONCE A DAY
     Route: 048
     Dates: start: 20160121, end: 20160415
  45. METOCLOPRAMIDE [Concomitant]
     Active Substance: METOCLOPRAMIDE
     Indication: Prophylaxis
     Dosage: 10 MILLIGRAM
     Route: 065
     Dates: start: 20150730
  46. METOCLOPRAMIDE [Concomitant]
     Active Substance: METOCLOPRAMIDE
     Dosage: 10 MILLIGRAM
     Route: 048
     Dates: start: 20150721, end: 20150727
  47. CYCLOPENTOLATE HYDROCHLORIDE [Concomitant]
     Active Substance: CYCLOPENTOLATE HYDROCHLORIDE
     Indication: Product used for unknown indication
     Dosage: 1 DROP
     Route: 065
     Dates: start: 20160601, end: 20160610
  48. ONDANSETRON [Concomitant]
     Active Substance: ONDANSETRON
     Indication: Prophylaxis
     Dosage: 16 MILLIGRAM, ONCE A DAY
     Route: 048
     Dates: start: 20150721, end: 20150722
  49. ONDANSETRON [Concomitant]
     Active Substance: ONDANSETRON
     Dosage: 8 MILLIGRAM, TWO TIMES A DAY
     Route: 048
     Dates: start: 20150721
  50. MORPHINE SULFATE [Concomitant]
     Active Substance: MORPHINE SULFATE
     Indication: Pain
     Dosage: 5 MILLIGRAM, AS NECESSARY
     Route: 048
     Dates: start: 20190405
  51. ACETAMINOPHEN [Concomitant]
     Active Substance: ACETAMINOPHEN
     Indication: Premedication
     Dosage: 500 MILLIGRAM, ONCE A DAY
     Route: 048
  52. ACETAMINOPHEN [Concomitant]
     Active Substance: ACETAMINOPHEN
     Dosage: 1 GRAM, 3 TIMES A DAY
     Route: 048
     Dates: start: 20150721, end: 20150726
  53. PREDNISOLONE [Concomitant]
     Active Substance: PREDNISOLONE
     Indication: Product used for unknown indication
     Dosage: 40 MILLIGRAM, ONCE A DAY
     Route: 048
     Dates: start: 20160601, end: 20160606
  54. RAMIPRIL [Concomitant]
     Active Substance: RAMIPRIL
     Indication: Prophylaxis
     Dosage: 5 MILLIGRAM, ONCE A DAY
     Route: 048
     Dates: start: 2016
  55. RAMIPRIL [Concomitant]
     Active Substance: RAMIPRIL
     Dosage: 2 DOSAGE FORM, ONCE A DAY
     Route: 048
     Dates: start: 20160415
  56. RAMIPRIL [Concomitant]
     Active Substance: RAMIPRIL
     Dosage: 1 DOSAGE FORM, ONCE A DAY
     Route: 048
     Dates: start: 20160415
  57. RAMIPRIL [Concomitant]
     Active Substance: RAMIPRIL
     Dosage: 7.5 MILLIGRAM, ONCE A DAY
     Route: 048
     Dates: start: 201605
  58. RAMIPRIL [Concomitant]
     Active Substance: RAMIPRIL
     Dosage: 10 MILLIGRAM, TWO TIMES A DAY
     Route: 048
     Dates: start: 2016
  59. RAMIPRIL [Concomitant]
     Active Substance: RAMIPRIL
     Dosage: 2 MILLIGRAM, ONCE A DAY
     Route: 048
     Dates: start: 20160415
  60. RAMIPRIL [Concomitant]
     Active Substance: RAMIPRIL
     Dosage: 2.5 MILLIGRAM, TWO TIMES A DAY
     Route: 048
     Dates: start: 20160415
  61. RAMIPRIL [Concomitant]
     Active Substance: RAMIPRIL
     Dosage: 3.75 MILLIGRAM, ONCE A DAY
     Route: 048
     Dates: start: 201605
  62. SENNA [Concomitant]
     Active Substance: SENNA LEAF\SENNOSIDES\SENNOSIDES A AND B
     Indication: Product used for unknown indication
     Dosage: 15 MILLIGRAM, ONCE A DAY
     Route: 048
     Dates: start: 20150721
  63. TOBRADEX [Concomitant]
     Active Substance: DEXAMETHASONE\TOBRAMYCIN
     Indication: Product used for unknown indication
     Dosage: 1 DROP
     Route: 047
     Dates: start: 20160601
  64. TRIMETHOPRIM [Concomitant]
     Active Substance: TRIMETHOPRIM
     Indication: Urinary tract infection
     Dosage: 200 MILLIGRAM, ONCE A DAY
     Route: 048
     Dates: start: 20181019, end: 20181023

REACTIONS (18)
  - Haemorrhoids [Recovered/Resolved with Sequelae]
  - Rectal haemorrhage [Recovered/Resolved]
  - Headache [Not Recovered/Not Resolved]
  - Presyncope [Recovered/Resolved]
  - Retinal detachment [Recovered/Resolved with Sequelae]
  - Ejection fraction decreased [Recovered/Resolved]
  - Diarrhoea [Recovered/Resolved]
  - Condition aggravated [Recovered/Resolved]
  - Weight decreased [Recovered/Resolved]
  - Pleural effusion [Recovered/Resolved]
  - Alopecia [Recovered/Resolved]
  - Back pain [Recovered/Resolved]
  - Dyspnoea [Recovered/Resolved]
  - Dizziness [Recovered/Resolved]
  - Constipation [Recovered/Resolved]
  - Fatigue [Not Recovered/Not Resolved]
  - Nausea [Recovered/Resolved]
  - Osteopenia [Not Recovered/Not Resolved]

NARRATIVE: CASE EVENT DATE: 20150721
